FAERS Safety Report 14909949 (Version 3)
Quarter: 2018Q2

REPORT INFORMATION
  Report Type: Spontaneous
  Country: US (occurrence: US)
  Receive Date: 20180517
  Receipt Date: 20180615
  Transmission Date: 20180711
  Serious: Yes (Hospitalization, Other)
  Sender: FDA-Public Use
  Company Number: US-TARO-2017TAR00974

PATIENT
  Age: 56 Year
  Sex: Male
  Weight: 89.34 kg

DRUGS (2)
  1. TOPICORT [Suspect]
     Active Substance: DESOXIMETASONE
     Indication: RASH
     Dosage: ^SPARINGLY,^ 3 TIMES ONLY
     Route: 061
     Dates: start: 20171013, end: 201710
  2. UNSPECIFIED STEROID SHOT [Concomitant]
     Active Substance: UNSPECIFIED INGREDIENT
     Indication: RASH
     Dosage: UNK UNK, ONCE
     Dates: start: 20171012, end: 20171012

REACTIONS (29)
  - Carotid artery dissection [Recovering/Resolving]
  - Dizziness [Unknown]
  - Urinary retention [Recovering/Resolving]
  - Hyperglycaemia [Recovered/Resolved]
  - Carotid artery occlusion [Recovering/Resolving]
  - Scar [Not Recovered/Not Resolved]
  - Circadian rhythm sleep disorder [Recovered/Resolved]
  - Infection [Not Recovered/Not Resolved]
  - Deep vein thrombosis [Recovered/Resolved]
  - Hypoxia [Recovered/Resolved]
  - Headache [Unknown]
  - Ischaemic stroke [Recovered/Resolved]
  - Brain oedema [Recovering/Resolving]
  - Adrenal insufficiency [Unknown]
  - Influenza [Unknown]
  - Pain [Unknown]
  - Dysphagia [Recovering/Resolving]
  - Product administered at inappropriate site [Recovered/Resolved]
  - Fall [Recovered/Resolved]
  - Hemiplegia [Recovering/Resolving]
  - Pyrexia [Unknown]
  - Physical disability [Recovering/Resolving]
  - Insomnia [Recovered/Resolved]
  - Hypertension [Recovered/Resolved]
  - Hyperlipidaemia [Not Recovered/Not Resolved]
  - Atrial fibrillation [Recovering/Resolving]
  - Cerebral artery thrombosis [Recovered/Resolved]
  - Eczema [Recovered/Resolved]
  - Anaemia [Recovering/Resolving]

NARRATIVE: CASE EVENT DATE: 2017
